FAERS Safety Report 15496758 (Version 2)
Quarter: 2019Q3

REPORT INFORMATION
  Report Type: Spontaneous
  Country: AU (occurrence: AU)
  Receive Date: 20181014
  Receipt Date: 20190813
  Transmission Date: 20191004
  Serious: No
  Sender: FDA-Public Use
  Company Number: PHHY2018AU123349

PATIENT
  Age: 21 Day
  Sex: Male

DRUGS (2)
  1. OCTREOTIDE. [Suspect]
     Active Substance: OCTREOTIDE
     Dosage: 10 UG/KG, QH
     Route: 042
  2. OCTREOTIDE. [Suspect]
     Active Substance: OCTREOTIDE
     Indication: CHYLOTHORAX
     Dosage: 1 UG/KG, QH
     Route: 042

REACTIONS (3)
  - Hyperglycaemia [Unknown]
  - Product use in unapproved indication [Unknown]
  - Blood thyroid stimulating hormone decreased [Unknown]
